FAERS Safety Report 9837765 (Version 1)
Quarter: 2013Q4

REPORT INFORMATION
  Report Type: Spontaneous
  Country: US (occurrence: None)
  Receive Date: 20131203
  Receipt Date: 20131203
  Transmission Date: 20140711
  Serious: Yes (Other)
  Sender: FDA-Public Use
  Company Number: 1591329

PATIENT
  Age: 28 Year
  Sex: Female

DRUGS (3)
  1. BUPIVACAINE HCL [Suspect]
     Indication: CAESAREAN SECTION
     Dosage: INTRADISCAL (INTRASPINAL)
     Dates: start: 20130202, end: 20130202
  2. BUPIVACAINE HCL [Suspect]
     Indication: CAESAREAN SECTION
     Dosage: INTRADISCAL (INSTRASPINAL)
     Dates: start: 20130202, end: 20130202
  3. ANESTHETICS [Concomitant]

REACTIONS (1)
  - Drug ineffective [None]
